FAERS Safety Report 24005765 (Version 1)
Quarter: 2024Q2

REPORT INFORMATION
  Report Type: Spontaneous
  Country: US (occurrence: None)
  Receive Date: 20240623
  Receipt Date: 20240623
  Transmission Date: 20240716
  Serious: Yes (Hospitalization)
  Sender: FDA-Public Use
  Company Number: None

PATIENT
  Age: 23 Year
  Sex: Female
  Weight: 84 kg

DRUGS (2)
  1. NALOXONE [Suspect]
     Active Substance: NALOXONE
     Indication: Drug abuse
     Dosage: FREQUENCY : AS NEEDED;?OTHER ROUTE : 4 MG INTRANASAL AND 1 MG IM;?
     Route: 050
     Dates: start: 20240623, end: 20240623
  2. NALOXONE [Suspect]
     Active Substance: NALOXONE
     Indication: Overdose

REACTIONS (4)
  - Pulmonary oedema [None]
  - Respiratory arrest [None]
  - Traumatic lung injury [None]
  - Acute respiratory failure [None]

NARRATIVE: CASE EVENT DATE: 20240623
